FAERS Safety Report 13065156 (Version 1)
Quarter: 2016Q4

REPORT INFORMATION
  Report Type: Spontaneous
  Country: JP (occurrence: JP)
  Receive Date: 20161227
  Receipt Date: 20161227
  Transmission Date: 20170207
  Serious: Yes (Other)
  Sender: FDA-Public Use
  Company Number: JP-BAYER-2016-240147

PATIENT
  Age: 23 Year
  Sex: Female

DRUGS (1)
  1. ACETYLSALICYLIC ACID({=100 MG) [Suspect]
     Active Substance: ASPIRIN
     Indication: ESSENTIAL THROMBOCYTHAEMIA
     Dosage: 100 MG, QD
     Route: 048

REACTIONS (4)
  - Abortion spontaneous [None]
  - Off label use [None]
  - Maternal exposure during pregnancy [Recovered/Resolved]
  - Drug ineffective for unapproved indication [None]
